FAERS Safety Report 12915744 (Version 1)
Quarter: 2016Q4

REPORT INFORMATION
  Report Type: Spontaneous
  Country: FR (occurrence: FR)
  Receive Date: 20161106
  Receipt Date: 20161106
  Transmission Date: 20170207
  Serious: Yes (Hospitalization)
  Sender: FDA-Public Use
  Company Number: FR-ROCHE-1850417

PATIENT
  Age: 59 Year
  Sex: Female

DRUGS (9)
  1. FLUOROURACIL. [Concomitant]
     Active Substance: FLUOROURACIL
     Route: 065
     Dates: start: 201412, end: 201507
  2. IRINOTECAN MYLAN [Suspect]
     Active Substance: IRINOTECAN
     Route: 042
     Dates: start: 201608
  3. AVASTIN [Suspect]
     Active Substance: BEVACIZUMAB
     Indication: COLON CANCER
     Route: 042
     Dates: start: 201412, end: 201507
  4. LEVOFOLINATE [Concomitant]
     Active Substance: LEVOLEUCOVORIN CALCIUM
  5. AVASTIN [Suspect]
     Active Substance: BEVACIZUMAB
     Dosage: IN COURSE EVERY 2 WEEKS, 4TH COURSE
     Route: 042
     Dates: start: 20160929
  6. AVASTIN [Suspect]
     Active Substance: BEVACIZUMAB
     Dosage: IN COURSE EVERY 2 WEEKS
     Route: 042
     Dates: start: 201608
  7. IRINOTECAN MYLAN [Suspect]
     Active Substance: IRINOTECAN
     Indication: COLON CANCER
     Route: 042
     Dates: start: 201412, end: 201507
  8. IRINOTECAN MYLAN [Suspect]
     Active Substance: IRINOTECAN
     Dosage: 4TH COURSE
     Route: 042
     Dates: start: 20160929
  9. METHYLPREDNISOLONE. [Concomitant]
     Active Substance: METHYLPREDNISOLONE

REACTIONS (1)
  - Cholinergic syndrome [Recovered/Resolved]

NARRATIVE: CASE EVENT DATE: 20160929
